FAERS Safety Report 21549106 (Version 1)
Quarter: 2022Q4

REPORT INFORMATION
  Report Type: Report from Study
  Country: US (occurrence: US)
  Receive Date: 20221103
  Receipt Date: 20221103
  Transmission Date: 20230113
  Serious: No
  Sender: FDA-Public Use
  Company Number: US-ABBVIE-22K-163-4442154-00

PATIENT
  Sex: Male

DRUGS (3)
  1. SKYRIZI [Suspect]
     Active Substance: RISANKIZUMAB-RZAA
     Indication: Psoriasis
     Dosage: WEEK 0
     Route: 058
     Dates: start: 20220620, end: 20220620
  2. SKYRIZI [Suspect]
     Active Substance: RISANKIZUMAB-RZAA
     Dosage: WEEK 4
     Route: 058
     Dates: start: 20220718, end: 20220718
  3. SKYRIZI [Suspect]
     Active Substance: RISANKIZUMAB-RZAA
     Route: 058

REACTIONS (9)
  - Burning sensation [Not Recovered/Not Resolved]
  - Tinea cruris [Unknown]
  - Feeling hot [Recovered/Resolved]
  - Psoriatic arthropathy [Not Recovered/Not Resolved]
  - Pain [Unknown]
  - Loss of personal independence in daily activities [Unknown]
  - Erythema [Recovering/Resolving]
  - General physical condition abnormal [Not Recovered/Not Resolved]
  - Drug ineffective [Unknown]
